FAERS Safety Report 8002808-2 (Version None)
Quarter: 2011Q4

REPORT INFORMATION
  Report Type: 
  Country: None (occurrence: None)
  Receive Date: 20111222
  Receipt Date: 20110118
  Transmission Date: 20120403
  Serious: No
  Sender: FDA-Public Use
  Company Number: US-GLAXOSMITHKLINE-A0882355A

PATIENT
  Age: 65 Year
  Sex: Male
  Weight: 83.2 kg

DRUGS (4)
  1. PLAVIX [Concomitant]
  2. TOPROL-XL [Concomitant]
  3. CRESTOR [Concomitant]
  4. AVODART [Suspect]
     Indication: PROSTATOMEGALY
     Dosage: 1CAP PER DAY
     Route: 048
     Dates: end: 20100917

REACTIONS (4)
  - URTICARIA [None]
  - LOCAL SWELLING [None]
  - PRURITUS [None]
  - SKIN BURNING SENSATION [None]
